FAERS Safety Report 18898569 (Version 1)
Quarter: 2021Q1

REPORT INFORMATION
  Report Type: Spontaneous
  Country: US (occurrence: US)
  Receive Date: 20210216
  Receipt Date: 20210216
  Transmission Date: 20210420
  Serious: Yes (Other)
  Sender: FDA-Public Use
  Company Number: US-AMNEAL PHARMACEUTICALS-2021-AMRX-00327

PATIENT
  Age: 33 Year
  Sex: Female

DRUGS (4)
  1. EMTRICITABINE AND TENOFOVIR DISOPROXIL FUMARATE [Suspect]
     Active Substance: EMTRICITABINE\TENOFOVIR DISOPROXIL FUMARATE
     Indication: HEPATITIS B
  2. RALTEGRAVIR. [Suspect]
     Active Substance: RALTEGRAVIR
     Indication: HEPATITIS B
  3. EMTRICITABINE AND TENOFOVIR DISOPROXIL FUMARATE [Suspect]
     Active Substance: EMTRICITABINE\TENOFOVIR DISOPROXIL FUMARATE
     Indication: HIV INFECTION
     Dosage: 1 DOSAGE FORM, DAILY
     Route: 048
  4. RALTEGRAVIR. [Suspect]
     Active Substance: RALTEGRAVIR
     Indication: HIV INFECTION
     Dosage: 2 DOSAGE FORM, DAILY
     Route: 048

REACTIONS (3)
  - Exposure during pregnancy [Unknown]
  - Off label use [Unknown]
  - Abortion spontaneous [Unknown]

NARRATIVE: CASE EVENT DATE: 202003
